FAERS Safety Report 5581643-9 (Version None)
Quarter: 2008Q1

REPORT INFORMATION
  Report Type: 
  Country: None (occurrence: None)
  Receive Date: 20080104
  Receipt Date: 20070723
  Transmission Date: 20080703
  Serious: Yes (Other)
  Sender: FDA-Public Use
  Company Number: US-ASTRAZENECA-2006UW07017

PATIENT
  Age: 46 Year
  Sex: Female
  Weight: 100 kg

DRUGS (4)
  1. SEROQUEL [Suspect]
     Indication: PSYCHOTIC DISORDER
     Dosage: 300MG INCREASED TO 600MG ON UNKNOWN DATE
     Route: 048
     Dates: start: 20020116
  2. ZYPREXA [Concomitant]
     Dosage: 2.5 MG INCREASED TO 20 MG
     Dates: start: 20010801, end: 20011101
  3. TRAZODONE HCL [Concomitant]
     Dates: start: 20010901, end: 20011201
  4. NEURONTIN [Concomitant]
     Dates: start: 19990101, end: 20040101

REACTIONS (9)
  - BENIGN BREAST NEOPLASM [None]
  - BLADDER DISORDER [None]
  - BLOOD TRIGLYCERIDES INCREASED [None]
  - DIABETIC GASTROPATHY [None]
  - HEPATITIS C [None]
  - HYPERGLYCAEMIA [None]
  - SYNCOPE [None]
  - TYPE 2 DIABETES MELLITUS [None]
  - WEIGHT INCREASED [None]
